FAERS Safety Report 9815533 (Version 1)
Quarter: 2014Q1

REPORT INFORMATION
  Report Type: Report from Study
  Country: US (occurrence: US)
  Receive Date: 20140114
  Receipt Date: 20140114
  Transmission Date: 20141002
  Serious: Yes (Death)
  Sender: FDA-Public Use
  Company Number: US-SA-2014SA003987

PATIENT
  Age: 83 Year
  Sex: 0

DRUGS (1)
  1. LANTUS [Suspect]
     Dosage: DOSE:75 UNIT(S)
     Route: 058

REACTIONS (1)
  - Death [Fatal]
